FAERS Safety Report 15106033 (Version 1)
Quarter: 2018Q3

REPORT INFORMATION
  Report Type: Spontaneous
  Country: US (occurrence: US)
  Receive Date: 20180704
  Receipt Date: 20180704
  Transmission Date: 20181010
  Serious: No
  Sender: FDA-Public Use
  Company Number: US-GLENMARK PHARMACEUTICALS-2018GMK034190

PATIENT

DRUGS (2)
  1. OLIVAMINE [Concomitant]
     Indication: SKIN DISORDER
     Dosage: UNK
     Route: 061
     Dates: start: 20180331
  2. IMIQUIMOD. [Suspect]
     Active Substance: IMIQUIMOD
     Indication: BASAL CELL CARCINOMA
     Dosage: 1 DF, HS (ONCE A DAY AT NIGHT)
     Route: 061
     Dates: start: 20180319

REACTIONS (1)
  - Drug ineffective for unapproved indication [Unknown]

NARRATIVE: CASE EVENT DATE: 20180319
